FAERS Safety Report 17704123 (Version 1)
Quarter: 2020Q2

REPORT INFORMATION
  Report Type: Spontaneous
  Country: US (occurrence: US)
  Receive Date: 20200423
  Receipt Date: 20200423
  Transmission Date: 20200714
  Serious: Yes (Hospitalization)
  Sender: FDA-Public Use
  Company Number: None

PATIENT
  Age: 72 Year
  Sex: Male
  Weight: 76 kg

DRUGS (1)
  1. ASPIRIN (ASPIRIN 325MG TAB) [Suspect]
     Active Substance: ASPIRIN
     Indication: PAIN
     Route: 048
     Dates: start: 20200110, end: 20200219

REACTIONS (8)
  - Abdominal distension [None]
  - Haematochezia [None]
  - Haemorrhage [None]
  - Anaemia [None]
  - Gastric haemorrhage [None]
  - Faeces discoloured [None]
  - Decreased appetite [None]
  - Asthenia [None]

NARRATIVE: CASE EVENT DATE: 20200219
